FAERS Safety Report 11267873 (Version 1)
Quarter: 2015Q3

REPORT INFORMATION
  Report Type: Spontaneous
  Country: US (occurrence: US)
  Receive Date: 20150713
  Receipt Date: 20150713
  Transmission Date: 20151125
  Serious: Yes (Other)
  Sender: FDA-Public Use
  Company Number: US-MPIJNJ-2013MPI000991

PATIENT
  Sex: Male

DRUGS (3)
  1. VELCADE [Suspect]
     Active Substance: BORTEZOMIB
     Dosage: 1 MG, 1/WEEK
     Route: 058
     Dates: start: 20130823
  2. VELCADE [Suspect]
     Active Substance: BORTEZOMIB
     Dosage: 1 MG, 1/WEEK
     Route: 058
     Dates: start: 20130913, end: 20131004
  3. VELCADE [Suspect]
     Active Substance: BORTEZOMIB
     Indication: PLASMA CELL MYELOMA
     Dosage: 3 MG, 1/WEEK
     Route: 058
     Dates: start: 20130517

REACTIONS (1)
  - Infection [Recovering/Resolving]
